FAERS Safety Report 21143463 (Version 1)
Quarter: 2022Q3

REPORT INFORMATION
  Report Type: Spontaneous
  Country: US (occurrence: None)
  Receive Date: 20220728
  Receipt Date: 20220728
  Transmission Date: 20221026
  Serious: Yes (Hospitalization)
  Sender: FDA-Public Use
  Company Number: None

PATIENT
  Age: 89 Year
  Sex: Female
  Weight: 67.1 kg

DRUGS (6)
  1. NIRMATRELVIR\RITONAVIR [Suspect]
     Active Substance: NIRMATRELVIR\RITONAVIR
     Dosage: FREQUENCY : TWICE A DAY;?
     Route: 048
     Dates: start: 20220717, end: 20220721
  2. enalapril 20  mg bid [Concomitant]
  3. furosemide 20 mg once a day [Concomitant]
  4. labetalol 200 mg bid [Concomitant]
  5. metformin 1000 mg bid [Concomitant]
  6. ondansetron 4 mg ODT TID PRN [Concomitant]

REACTIONS (2)
  - Asthenia [None]
  - Nausea [None]

NARRATIVE: CASE EVENT DATE: 20220727
